FAERS Safety Report 9820518 (Version 2)
Quarter: 2013Q4

REPORT INFORMATION
  Report Type: Spontaneous
  Country: US (occurrence: None)
  Receive Date: 20131028
  Receipt Date: 20131028
  Transmission Date: 20140711
  Serious: Yes (Other)
  Sender: FDA-Public Use
  Company Number: 2013US001780

PATIENT
  Age: 72 Year
  Sex: Male
  Weight: 93 kg

DRUGS (11)
  1. ICLUSIG [Suspect]
     Indication: CHRONIC MYELOID LEUKAEMIA
     Route: 048
     Dates: start: 20130204, end: 20130422
  2. ALPRAZOLAM (ALPRAZOLAM) [Concomitant]
  3. JANUMET (METFORMIN HYDROCHLORIDE, SITAGLIPTIN PHOSPHATE MONOHYDRATE) [Concomitant]
  4. METROGEL (METRONIDAZOLE) [Concomitant]
  5. HYDROCHLOROTHIAZIDE (HYDROCHLOROTHIAZIDE) [Concomitant]
  6. WELCHOL (COLESEVELAM HYDROCHLORIDE) [Concomitant]
  7. ASA (ASA) [Concomitant]
  8. PLAVIX (CLOPIDOGREL BISULFATE) [Concomitant]
  9. ATENOLOL (ATENOLOL) [Concomitant]
  10. LOSARTAN (LOSARTAN) [Concomitant]
  11. ADVAIR (FLUTICASONE PROPIONATE, SALMETEROL XINAFOATE) [Concomitant]

REACTIONS (6)
  - Chest pain [None]
  - Angina pectoris [None]
  - Rash [None]
  - Faeces hard [None]
  - Fatigue [None]
  - Decreased appetite [None]
